FAERS Safety Report 17614785 (Version 2)
Quarter: 2021Q3

REPORT INFORMATION
  Report Type: Spontaneous
  Country: CH (occurrence: CH)
  Receive Date: 20200402
  Receipt Date: 20210802
  Transmission Date: 20211014
  Serious: Yes (Hospitalization)
  Sender: FDA-Public Use
  Company Number: CH-ROCHE-2572515

PATIENT
  Age: 48 Year
  Sex: Female

DRUGS (13)
  1. REBIF [Concomitant]
     Active Substance: INTERFERON BETA-1A
     Dates: end: 201009
  2. PREDNISONE. [Concomitant]
     Active Substance: PREDNISONE
  3. PERENTEROL [Concomitant]
     Active Substance: SACCHAROMYCES CEREVISIAE
  4. LUVIT [Concomitant]
  5. GILENYA [Concomitant]
     Active Substance: FINGOLIMOD HYDROCHLORIDE
     Dates: start: 2013, end: 2013
  6. ACTEMRA [Suspect]
     Active Substance: TOCILIZUMAB
     Indication: MULTIPLE SCLEROSIS
     Route: 042
     Dates: start: 20160520, end: 20161202
  7. ACTEMRA [Suspect]
     Active Substance: TOCILIZUMAB
     Indication: MULTIPLE SCLEROSIS
     Route: 058
     Dates: start: 201701, end: 202002
  8. DUOTRAV [Concomitant]
     Active Substance: TIMOLOL MALEATE\TRAVOPROST
  9. FLAGYL [Concomitant]
     Active Substance: METRONIDAZOLE\METRONIDAZOLE HYDROCHLORIDE
  10. LACRYCON [Concomitant]
     Active Substance: HYALURONATE SODIUM
  11. AUBAGIO [Concomitant]
     Active Substance: TERIFLUNOMIDE
     Dates: start: 201409, end: 201905
  12. NEXIUM MUPS [Concomitant]
     Active Substance: ESOMEPRAZOLE
  13. COLCHICINE. [Concomitant]
     Active Substance: COLCHICINE

REACTIONS (1)
  - Proctitis [Recovered/Resolved]

NARRATIVE: CASE EVENT DATE: 202002
